FAERS Safety Report 7691427-3 (Version None)
Quarter: 2011Q3

REPORT INFORMATION
  Report Type: 
  Country: None (occurrence: None)
  Receive Date: 20110818
  Receipt Date: 20110816
  Transmission Date: 20111222
  Serious: Yes (Hospitalization)
  Sender: FDA-Public Use
  Company Number: PHHY2011SG73486

PATIENT
  Age: 95 Year
  Sex: Female

DRUGS (1)
  1. EXELON [Suspect]
     Indication: DEMENTIA
     Dosage: 4.6MG/24HR
     Route: 062

REACTIONS (2)
  - CIRCULATORY COLLAPSE [None]
  - AGITATION [None]
